FAERS Safety Report 24692752 (Version 1)
Quarter: 2024Q4

REPORT INFORMATION
  Report Type: Spontaneous
  Country: ES (occurrence: ES)
  Receive Date: 20241203
  Receipt Date: 20241203
  Transmission Date: 20250114
  Serious: Yes (Other)
  Sender: MYLAN
  Company Number: ES-PFIZER INC-2019423561

PATIENT
  Age: 56 Year
  Sex: Female

DRUGS (9)
  1. METHOTREXATE [Interacting]
     Active Substance: METHOTREXATE
     Indication: Rheumatoid arthritis
     Dosage: 15 MG, WEEKLY
     Route: 065
     Dates: end: 200607
  2. METHOTREXATE [Interacting]
     Active Substance: METHOTREXATE
     Dosage: 15 MILLIGRAM, QW (15 MG, QW)
     Route: 065
  3. ADALIMUMAB [Suspect]
     Active Substance: ADALIMUMAB
     Indication: Rheumatoid arthritis
     Dosage: UNK
     Route: 065
  4. PREDNISONE [Interacting]
     Active Substance: PREDNISONE
     Indication: Rheumatoid arthritis
     Dosage: 3.75 MG, DAILY
     Route: 065
     Dates: end: 200607
  5. PREDNISONE [Interacting]
     Active Substance: PREDNISONE
     Dosage: 3.75 MILLIGRAM, QD (3.75 MG, QD)
     Route: 065
  6. PREDNISONE [Interacting]
     Active Substance: PREDNISONE
     Dosage: UNK UNK, QD
     Route: 065
     Dates: start: 1992
  7. HUMIRA [Interacting]
     Active Substance: ADALIMUMAB
     Indication: Rheumatoid arthritis
     Dosage: UNK
     Route: 065
     Dates: start: 200405, end: 200607
  8. REMICADE [Interacting]
     Active Substance: INFLIXIMAB
     Indication: Rheumatoid arthritis
     Dosage: UNK
     Route: 065
     Dates: start: 201010
  9. REMICADE [Interacting]
     Active Substance: INFLIXIMAB
     Dosage: UNK
     Route: 065
     Dates: start: 200010, end: 200405

REACTIONS (4)
  - Cutaneous leishmaniasis [Recovering/Resolving]
  - Mucocutaneous leishmaniasis [Not Recovered/Not Resolved]
  - Drug ineffective [Unknown]
  - Drug interaction [Unknown]

NARRATIVE: CASE EVENT DATE: 20040101
